FAERS Safety Report 4947697-5 (Version None)
Quarter: 2006Q1

REPORT INFORMATION
  Report Type: 
  Country: None (occurrence: None)
  Receive Date: 20060317
  Receipt Date: 20060317
  Transmission Date: 20060701
  Serious: Yes (Other)
  Sender: FDA-Public Use
  Company Number: None

PATIENT
  Age: 37 Year
  Sex: Female
  Weight: 86.637 kg

DRUGS (3)
  1. GAMMAGARD [Suspect]
     Indication: BLOOD IMMUNOGLOBULIN G DECREASED
     Dosage: 40 GRAMS OVER 6 HOURS
  2. GAMMAGARD [Suspect]
  3. GAMMAGARD [Suspect]

REACTIONS (4)
  - DRUG INEFFECTIVE [None]
  - HEADACHE [None]
  - INFUSION RELATED REACTION [None]
  - PHARMACEUTICAL PRODUCT COMPLAINT [None]
